FAERS Safety Report 15473670 (Version 1)
Quarter: 2018Q4

REPORT INFORMATION
  Report Type: Spontaneous
  Country: None (occurrence: US)
  Receive Date: 20181008
  Receipt Date: 20181008
  Transmission Date: 20190205
  Serious: No
  Sender: FDA-Public Use
  Company Number: US-MEDAC PHARMA, INC.-2055774

PATIENT
  Age: 70 Year
  Weight: 121.82 kg

DRUGS (11)
  1. LOVASTATIN. [Concomitant]
     Active Substance: LOVASTATIN
     Dates: start: 2017
  2. ORENCIA [Concomitant]
     Active Substance: ABATACEPT
  3. TRAMADOL. [Concomitant]
     Active Substance: TRAMADOL
  4. VERAPAMIL [Concomitant]
     Active Substance: VERAPAMIL HYDROCHLORIDE
     Dates: start: 2010
  5. CELEBREX [Concomitant]
     Active Substance: CELECOXIB
     Dates: start: 2008
  6. RASUVO [Suspect]
     Active Substance: METHOTREXATE SODIUM
     Indication: RHEUMATOID ARTHRITIS
     Dates: start: 2016
  7. FOLIC ACID. [Concomitant]
     Active Substance: FOLIC ACID
  8. PREDNISONE. [Concomitant]
     Active Substance: PREDNISONE
  9. PROAIR HFA [Concomitant]
     Active Substance: ALBUTEROL SULFATE
  10. RECLAST [Concomitant]
     Active Substance: ZOLEDRONIC ACID
  11. BREO ELLIPTA [Concomitant]
     Active Substance: FLUTICASONE FUROATE\VILANTEROL TRIFENATATE
     Dates: start: 2016

REACTIONS (1)
  - Injection site injury [Not Recovered/Not Resolved]
